FAERS Safety Report 25029725 (Version 6)
Quarter: 2025Q3

REPORT INFORMATION
  Report Type: Spontaneous
  Country: US (occurrence: US)
  Receive Date: 20250303
  Receipt Date: 20250820
  Transmission Date: 20251021
  Serious: No
  Sender: BRISTOL-MYERS SQUIBB COMPANY
  Company Number: US-BRISTOL-MYERS SQUIBB COMPANY-2025-031257

PATIENT
  Age: 32 Year
  Sex: Male

DRUGS (1)
  1. POMALYST [Suspect]
     Active Substance: POMALIDOMIDE
     Indication: Hereditary haemorrhagic telangiectasia
     Dosage: DRUG SEPARATE DOSAGE NUMBER: 21
     Route: 048

REACTIONS (4)
  - Off label use [Unknown]
  - Product prescribing issue [Unknown]
  - Product packaging quantity issue [Unknown]
  - Product dose omission issue [Unknown]
